FAERS Safety Report 9684190 (Version 3)
Quarter: 2014Q3

REPORT INFORMATION
  Report Type: Spontaneous
  Country: US (occurrence: US)
  Receive Date: 20131112
  Receipt Date: 20140702
  Transmission Date: 20150326
  Serious: Yes (Hospitalization, Disabling, Other)
  Sender: FDA-Public Use
  Company Number: US-009507513-1205USA04975

PATIENT
  Sex: Female

DRUGS (5)
  1. SYNTHROID [Concomitant]
     Active Substance: LEVOTHYROXINE SODIUM
     Indication: HYPOTHYROIDISM
  2. FOSAMAX [Suspect]
     Active Substance: ALENDRONATE SODIUM
     Dosage: UNK
     Route: 048
     Dates: start: 1999
  3. FOSAMAX [Suspect]
     Active Substance: ALENDRONATE SODIUM
     Indication: OSTEOPOROSIS
     Dosage: 70 MG, UNK
     Route: 048
     Dates: end: 201006
  4. ALENDRONATE SODIUM. [Suspect]
     Active Substance: ALENDRONATE SODIUM
     Indication: OSTEOPOROSIS
  5. ALENDRONATE SODIUM. [Suspect]
     Active Substance: ALENDRONATE SODIUM
     Indication: OSTEOPOROSIS

REACTIONS (27)
  - Bone graft [Unknown]
  - Urinary tract infection [Unknown]
  - Nausea [Unknown]
  - Device failure [Unknown]
  - Stress fracture [Unknown]
  - Hypertension [Unknown]
  - Fall [Unknown]
  - Femur fracture [Unknown]
  - Intramedullary rod insertion [Unknown]
  - Packed red blood cell transfusion [Unknown]
  - Anxiety [Unknown]
  - Endodontic procedure [Unknown]
  - Procedural haemorrhage [Unknown]
  - Osteoporosis [Unknown]
  - Appendicectomy [Unknown]
  - Fall [Unknown]
  - Tooth extraction [Unknown]
  - Pneumonia [Unknown]
  - Dental caries [Unknown]
  - Fracture nonunion [Unknown]
  - Bone density decreased [Unknown]
  - Wrist fracture [Unknown]
  - Vomiting [Unknown]
  - Open reduction of fracture [Unknown]
  - Deep vein thrombosis [Unknown]
  - Gastrooesophageal reflux disease [Unknown]
  - Diarrhoea [Unknown]

NARRATIVE: CASE EVENT DATE: 2003
